FAERS Safety Report 14269530 (Version 1)
Quarter: 2017Q4

REPORT INFORMATION
  Report Type: Spontaneous
  Country: US (occurrence: US)
  Receive Date: 20171211
  Receipt Date: 20171211
  Transmission Date: 20180321
  Serious: Yes (Hospitalization)
  Sender: FDA-Public Use
  Company Number: US-OTSUKA-DJ201401502

PATIENT

DRUGS (7)
  1. SYNTHROID [Concomitant]
     Active Substance: LEVOTHYROXINE SODIUM
     Route: 065
  2. WELLBUTRIN [Concomitant]
     Active Substance: BUPROPION HYDROCHLORIDE
     Route: 065
  3. CLOZARIL [Concomitant]
     Active Substance: CLOZAPINE
     Route: 065
  4. ZYPREXA [Concomitant]
     Active Substance: OLANZAPINE
     Route: 065
  5. ABILIFY [Suspect]
     Active Substance: ARIPIPRAZOLE
     Route: 065
  6. DEPAKOTE [Concomitant]
     Active Substance: DIVALPROEX SODIUM
     Route: 065
  7. OLANZAPINE. [Concomitant]
     Active Substance: OLANZAPINE

REACTIONS (1)
  - Cough [Unknown]
